FAERS Safety Report 5717550-8 (Version None)
Quarter: 2008Q2

REPORT INFORMATION
  Report Type: 
  Country: None (occurrence: None)
  Receive Date: 20080425
  Receipt Date: 20080422
  Transmission Date: 20081010
  Serious: Yes (Other)
  Sender: FDA-Public Use
  Company Number: HQWYE894923MAY05

PATIENT
  Sex: Female

DRUGS (4)
  1. PREMPRO [Suspect]
     Dosage: UNKNOWN
     Route: 048
     Dates: start: 19970401, end: 20041201
  2. MEDROXYPROGESTERONE ACETATE [Suspect]
  3. PROVERA [Suspect]
  4. PREMARIN [Suspect]
     Dosage: UNKNOWN
     Route: 048
     Dates: start: 19951001, end: 19970401

REACTIONS (1)
  - BREAST CANCER METASTATIC [None]
